FAERS Safety Report 4623667-1 (Version None)
Quarter: 2005Q1

REPORT INFORMATION
  Report Type: 
  Country: None (occurrence: None)
  Receive Date: 20050331
  Receipt Date: 20050318
  Transmission Date: 20050727
  Serious: Yes (Hospitalization)
  Sender: FDA-Public Use
  Company Number: PT-JNJFOC-20050301809

PATIENT
  Sex: Female
  Weight: 56 kg

DRUGS (5)
  1. REMICADE [Suspect]
     Route: 042
  2. ISONIAZID [Concomitant]
     Indication: TUBERCULOSIS PROPHYLAXIS
  3. METHOTREXATE [Concomitant]
  4. PREDNISONE [Concomitant]
  5. DICLOFENAC [Concomitant]

REACTIONS (1)
  - TUBERCULOSIS [None]
